FAERS Safety Report 24648431 (Version 2)
Quarter: 2025Q3

REPORT INFORMATION
  Report Type: Report from Study
  Country: US (occurrence: US)
  Receive Date: 20241121
  Receipt Date: 20250802
  Transmission Date: 20251021
  Serious: Yes (Other)
  Sender: ALEXION PHARMACEUTICALS
  Company Number: US-AstraZeneca-2023A270813

PATIENT
  Sex: Female

DRUGS (2)
  1. LYNPARZA [Suspect]
     Active Substance: OLAPARIB
     Indication: Hepatobiliary cancer
     Dosage: 300 MILLIGRAM, BID
     Dates: start: 20240210
  2. LYNPARZA [Suspect]
     Active Substance: OLAPARIB
     Indication: Ovarian cancer

REACTIONS (8)
  - Neuropathy peripheral [Unknown]
  - Hypoaesthesia [Unknown]
  - Hypoaesthesia [Unknown]
  - Limb discomfort [Unknown]
  - Paraesthesia [Unknown]
  - Nausea [Recovering/Resolving]
  - Constipation [Recovered/Resolved]
  - Fatigue [Unknown]
